FAERS Safety Report 16370481 (Version 1)
Quarter: 2019Q2

REPORT INFORMATION
  Report Type: Spontaneous
  Country: FR (occurrence: FR)
  Receive Date: 20190530
  Receipt Date: 20190530
  Transmission Date: 20190711
  Serious: Yes (Other)
  Sender: FDA-Public Use
  Company Number: FR-SUN PHARMACEUTICAL INDUSTRIES LTD-2019RR-209222

PATIENT
  Age: 39 Year
  Sex: Male
  Weight: 86 kg

DRUGS (6)
  1. BACLOFENE [Concomitant]
     Active Substance: BACLOFEN
     Indication: ALCOHOLISM
     Dosage: BACLOFENE 10MG
     Route: 048
     Dates: start: 201209
  2. TRAMADOL. [Suspect]
     Active Substance: TRAMADOL
     Indication: CLUSTER HEADACHE
     Dosage: 9 DOSAGE FORM, DAILY
     Route: 048
     Dates: start: 2013
  3. TEGRETOL [Suspect]
     Active Substance: CARBAMAZEPINE
     Indication: CLUSTER HEADACHE
     Dosage: 800 MILLIGRAM, DAILY
     Route: 048
     Dates: start: 2013
  4. COCAINE [Suspect]
     Active Substance: COCAINE
     Indication: PRODUCT USED FOR UNKNOWN INDICATION
     Dosage: ()
     Route: 045
     Dates: start: 201506
  5. CODOLIPRANE [Suspect]
     Active Substance: ACETAMINOPHEN\CODEINE PHOSPHATE
     Indication: PRODUCT USED FOR UNKNOWN INDICATION
     Dosage: 10 DOSAGE FORM, DAILY
     Route: 048
     Dates: start: 201212, end: 2013
  6. PREGABALIN. [Suspect]
     Active Substance: PREGABALIN
     Indication: CLUSTER HEADACHE
     Dosage: 600 MILLIGRAM, DAILY
     Route: 048
     Dates: start: 2013

REACTIONS (3)
  - Cluster headache [Not Recovered/Not Resolved]
  - Drug abuse [Not Recovered/Not Resolved]
  - Trigeminal neuralgia [Not Recovered/Not Resolved]

NARRATIVE: CASE EVENT DATE: 1996
